FAERS Safety Report 5580764-4 (Version None)
Quarter: 2007Q4

REPORT INFORMATION
  Report Type: 
  Country: None (occurrence: None)
  Receive Date: 20071227
  Receipt Date: 20071213
  Transmission Date: 20080405
  Serious: Yes (Other)
  Sender: FDA-Public Use
  Company Number: ERP07000056

PATIENT
  Age: 35 Year
  Sex: Male

DRUGS (1)
  1. DANTRIUM [Suspect]
     Indication: MUSCLE SPASTICITY
     Dosage: 100 MG, 3/DAY, ORAL
     Route: 048

REACTIONS (5)
  - DEPRESSED LEVEL OF CONSCIOUSNESS [None]
  - EPILEPSY [None]
  - HYPOTHERMIA [None]
  - NERVOUS SYSTEM DISORDER [None]
  - SALIVARY HYPERSECRETION [None]
